FAERS Safety Report 7529979-6 (Version None)
Quarter: 2011Q2

REPORT INFORMATION
  Report Type: 
  Country: None (occurrence: None)
  Receive Date: 20110606
  Receipt Date: 20110606
  Transmission Date: 20111010
  Serious: Yes (Other)
  Sender: FDA-Public Use
  Company Number: None

PATIENT
  Sex: Female
  Weight: 68.9467 kg

DRUGS (14)
  1. CALCIUM CARBONATE-VITAMIN D3 [Concomitant]
  2. AZATHIOPRINE [Concomitant]
  3. CYANOCOBALAMIN [Concomitant]
  4. FOLIC ACID [Concomitant]
  5. IBUROFEN [Concomitant]
  6. NYSTATIN-TRIAMCINOLONE [Concomitant]
  7. HYDROCHLOROTHIAZIDE [Concomitant]
  8. ALENDRONATE SODIUM [Suspect]
     Indication: OSTEOPOROSIS
     Dosage: 70MG ONCE A WEEK PO MORE OR LESS FOR 10
     Route: 048
     Dates: start: 20010215, end: 20110509
  9. LEVOBUNOLOL [Concomitant]
  10. CLONIDINE [Concomitant]
  11. ASACOL [Concomitant]
  12. PROCHLORPERAZINE MALEATE [Concomitant]
  13. PREDNISONE [Concomitant]
  14. FERROUS SULFATE TAB [Concomitant]

REACTIONS (3)
  - OSTEOMYELITIS [None]
  - NO THERAPEUTIC RESPONSE [None]
  - ACTINOMYCOSIS [None]
